FAERS Safety Report 5508114-X (Version None)
Quarter: 2007Q4

REPORT INFORMATION
  Report Type: 
  Country: None (occurrence: None)
  Receive Date: 20071106
  Receipt Date: 20071026
  Transmission Date: 20080405
  Serious: Yes (Other)
  Sender: FDA-Public Use
  Company Number: US-PFIZER INC-2007081725

PATIENT
  Sex: Male
  Weight: 82.6 kg

DRUGS (16)
  1. GENOTROPIN [Suspect]
     Indication: HIV WASTING SYNDROME
  2. OXYCONTIN [Interacting]
     Dates: start: 20070916, end: 20071008
  3. MS CONTIN [Interacting]
     Dates: start: 20071008, end: 20071017
  4. ATENOLOL [Concomitant]
  5. BUPROPION HCL [Concomitant]
  6. CRESTOR [Concomitant]
  7. CYMBALTA [Concomitant]
  8. NORVIR [Concomitant]
  9. PREVACID [Concomitant]
  10. REYATAZ [Concomitant]
  11. TRICOR [Concomitant]
  12. VIREAD [Concomitant]
  13. ZETIA [Concomitant]
  14. ZOVIRAX [Concomitant]
  15. TESTOSTERONE [Concomitant]
  16. FLONASE [Concomitant]

REACTIONS (3)
  - DRUG INTERACTION [None]
  - PHARYNGEAL OEDEMA [None]
  - SWOLLEN TONGUE [None]
